FAERS Safety Report 10416785 (Version 2)
Quarter: 2014Q3

REPORT INFORMATION
  Report Type: Report from Study
  Country: FR (occurrence: FR)
  Receive Date: 20140828
  Receipt Date: 20140922
  Transmission Date: 20150326
  Serious: Yes (Hospitalization)
  Sender: FDA-Public Use
  Company Number: FR-BRISTOL-MYERS SQUIBB COMPANY-21344825

PATIENT
  Age: 71 Year
  Sex: Male

DRUGS (16)
  1. CETUXIMAB [Suspect]
     Active Substance: CETUXIMAB
     Indication: COLORECTAL CANCER
     Route: 042
     Dates: start: 20140211, end: 20140610
  2. SOLUPRED [Concomitant]
     Active Substance: PREDNISOLONE
  3. ORACILLINE [Concomitant]
     Active Substance: PENICILLIN V
  4. LYRICA [Concomitant]
     Active Substance: PREGABALIN
  5. INEXIUM [Concomitant]
     Active Substance: ESOMEPRAZOLE
  6. NERISONE [Concomitant]
     Active Substance: DIFLUCORTOLONE VALERATE
  7. TOLEXINE [Concomitant]
     Active Substance: DOXYCYCLINE
  8. CRESTOR [Concomitant]
     Active Substance: ROSUVASTATIN CALCIUM
  9. AUGMENTIN [Concomitant]
     Active Substance: AMOXICILLIN\CLAVULANATE POTASSIUM
  10. LASILIX [Concomitant]
     Active Substance: FUROSEMIDE
  11. VEMURAFENIB [Suspect]
     Active Substance: VEMURAFENIB
     Indication: COLORECTAL CANCER
     Route: 048
     Dates: start: 20140211, end: 20140616
  12. FRAGMIN [Concomitant]
     Active Substance: DALTEPARIN SODIUM
  13. VERAPAMIL [Concomitant]
     Active Substance: VERAPAMIL HYDROCHLORIDE
  14. DAFALGAN [Concomitant]
     Active Substance: ACETAMINOPHEN
  15. VICTAN [Concomitant]
     Active Substance: ETHYL LOFLAZEPATE
  16. ALDACTONE [Concomitant]
     Active Substance: SPIRONOLACTONE

REACTIONS (1)
  - Cholestasis [Recovered/Resolved]

NARRATIVE: CASE EVENT DATE: 20140616
